FAERS Safety Report 4965037-2 (Version None)
Quarter: 2006Q1

REPORT INFORMATION
  Report Type: 
  Country: None (occurrence: None)
  Receive Date: 20060130
  Receipt Date: 20051108
  Transmission Date: 20060701
  Serious: No
  Sender: FDA-Public Use
  Company Number: COT_0257_2005

PATIENT
  Age: 38 Year
  Sex: Female
  Weight: 62.1428 kg

DRUGS (13)
  1. VENTAVIS [Suspect]
     Indication: PULMONARY HYPERTENSION
     Dosage: 2.5 MCG ONCE IH
     Route: 055
     Dates: start: 20051104, end: 20051104
  2. VENTAVIS [Suspect]
     Indication: PULMONARY HYPERTENSION
     Dosage: 5 MCG 5 TO 6X/DAY IH
     Route: 055
     Dates: start: 20051104
  3. TRACLEER [Concomitant]
  4. COUMADIN [Concomitant]
  5. TORSEMIDE [Concomitant]
  6. PRILOSEC [Concomitant]
  7. DIGOXIN [Concomitant]
  8. PREDNISONE 50MG TAB [Concomitant]
  9. ADVAIR DISKUS 100/50 [Concomitant]
  10. ATROVENT [Concomitant]
  11. AMBIEN [Concomitant]
  12. K-DUR 10 [Concomitant]
  13. MAG OX [Concomitant]

REACTIONS (4)
  - CHEST DISCOMFORT [None]
  - DIZZINESS [None]
  - HEADACHE [None]
  - THROAT IRRITATION [None]
